FAERS Safety Report 12573946 (Version 1)
Quarter: 2016Q3

REPORT INFORMATION
  Report Type: Report from Study
  Country: US (occurrence: US)
  Receive Date: 20160720
  Receipt Date: 20160720
  Transmission Date: 20161109
  Serious: Yes (Other)
  Sender: FDA-Public Use
  Company Number: US-ROCHE-1797660

PATIENT
  Age: 64 Year
  Sex: Female
  Weight: 70.2 kg

DRUGS (3)
  1. VISMODEGIB [Suspect]
     Active Substance: VISMODEGIB
     Dosage: DOSING: 600 MG, CYCLE 7
     Route: 048
     Dates: start: 20130501, end: 20130508
  2. VISMODEGIB [Suspect]
     Active Substance: VISMODEGIB
     Indication: PLASMA CELL MYELOMA
     Dosage: DOSING: 4200 MG. CYCLE 1 ON 14 NOV 2012, CYCLE 2: 12/DEC/2012, CYCLE 3: 09/JAN/2013, CYCLE 4: 06/FEB
     Route: 048
     Dates: start: 20121114
  3. VISMODEGIB [Suspect]
     Active Substance: VISMODEGIB
     Dosage: DOSE: 2400 MG, CYCLE 6
     Route: 048
     Dates: start: 20130403

REACTIONS (3)
  - Muscle spasms [Unknown]
  - Hyperglycaemia [Unknown]
  - Muscle twitching [Unknown]
